FAERS Safety Report 9159169 (Version 1)
Quarter: 2013Q1

REPORT INFORMATION
  Report Type: Spontaneous
  Country: GB (occurrence: None)
  Receive Date: 20130213
  Receipt Date: 20130213
  Transmission Date: 20140127
  Serious: Yes (Other)
  Sender: FDA-Public Use
  Company Number: 2013SUN00086

PATIENT
  Age: 78 Year
  Sex: Male

DRUGS (5)
  1. BACLOFEN (BACLOFEN) INJECTION [Suspect]
     Dates: start: 2009, end: 2012
  2. DIGOXIN (DIGOXIN) [Concomitant]
  3. FUROSEMIDE (FRUSEMIDE) [Concomitant]
  4. SIMVASTATIN (SIMVASTATIN) [Concomitant]
  5. WARFARIN (WARFARIN) [Concomitant]

REACTIONS (9)
  - Body temperature fluctuation [None]
  - Feeling abnormal [None]
  - Heart rate increased [None]
  - Hyperhidrosis [None]
  - Suicidal ideation [None]
  - Tearfulness [None]
  - Insomnia [None]
  - Expired drug administered [None]
  - Fatigue [None]
